FAERS Safety Report 17745885 (Version 1)
Quarter: 2020Q2

REPORT INFORMATION
  Report Type: Spontaneous
  Country: US (occurrence: US)
  Receive Date: 20200505
  Receipt Date: 20200505
  Transmission Date: 20200714
  Serious: No
  Sender: FDA-Public Use
  Company Number: US-SA-2020SA110987

PATIENT
  Age: 45 Year
  Sex: Female

DRUGS (5)
  1. LISINOPRIL. [Concomitant]
     Active Substance: LISINOPRIL
  2. ALBUTEROL SULFATE. [Concomitant]
     Active Substance: ALBUTEROL SULFATE
  3. MOXIFLOXACIN;TRIAMCINOLONE [Concomitant]
  4. DUPIXENT [Suspect]
     Active Substance: DUPILUMAB
     Indication: DERMATITIS ATOPIC
     Dosage: 300 MG, QOW
     Route: 058
     Dates: start: 201904
  5. DESONIDE. [Concomitant]
     Active Substance: DESONIDE

REACTIONS (2)
  - Injection site bruising [Unknown]
  - Injection site pain [Unknown]

NARRATIVE: CASE EVENT DATE: 20200422
